FAERS Safety Report 25682764 (Version 1)
Quarter: 2025Q3

REPORT INFORMATION
  Report Type: Spontaneous
  Country: US (occurrence: None)
  Receive Date: 20250814
  Receipt Date: 20250814
  Transmission Date: 20251020
  Serious: No
  Sender: FDA-CTU
  Company Number: None

PATIENT

DRUGS (1)
  1. OPSUMIT [Suspect]
     Active Substance: MACITENTAN

REACTIONS (11)
  - Drug hypersensitivity [None]
  - Therapy interrupted [None]
  - Dyspnoea [None]
  - Gait inability [None]
  - Ocular icterus [None]
  - Fatigue [None]
  - Asthenia [None]
  - Abdominal pain upper [None]
  - Joint swelling [None]
  - Peripheral swelling [None]
  - Peripheral swelling [None]
